FAERS Safety Report 5537498-1 (Version None)
Quarter: 2007Q4

REPORT INFORMATION
  Report Type: 
  Country: None (occurrence: None)
  Receive Date: 20071207
  Receipt Date: 20071127
  Transmission Date: 20080405
  Serious: Yes (Other)
  Sender: FDA-Public Use
  Company Number: US-ELI_LILLY_AND_COMPANY-US200710003305

PATIENT
  Sex: Female

DRUGS (10)
  1. HUMALOG [Suspect]
     Dosage: UNK, UNK
     Route: 058
     Dates: start: 20050101
  2. GLUCOSE [Concomitant]
     Dosage: UNK, 4/D
     Dates: start: 20060420
  3. LOFIBRA [Concomitant]
     Dosage: 200 MG, DAILY (1/D)
     Dates: start: 20060214
  4. TERAZOSIN HCL [Concomitant]
     Dosage: 5 MG, DAILY (1/D)
     Dates: start: 20060214
  5. RANITIDINE HCL [Concomitant]
     Dosage: 150 MG, 2/D
     Dates: start: 20050831
  6. ZETIA [Concomitant]
     Dosage: 10 MG, DAILY (1/D)
     Dates: start: 20050831
  7. FOSAMAX [Concomitant]
     Dosage: 70 MG, WEEKLY (1/W)
     Dates: start: 20050831
  8. METOPROLOL [Concomitant]
     Dosage: 25 MG, 2/D
     Dates: start: 20050831
  9. ELAVIL [Concomitant]
     Dosage: 25 MG, DAILY (1/D)
     Dates: start: 20050831
  10. GLUCOSAMINE [Concomitant]
     Dosage: UNK, 2/D
     Dates: start: 20050831

REACTIONS (1)
  - PANCREATIC CARCINOMA [None]
